FAERS Safety Report 10070977 (Version 1)
Quarter: 2014Q2

REPORT INFORMATION
  Report Type: Spontaneous
  Country: BR (occurrence: BR)
  Receive Date: 20140410
  Receipt Date: 20140410
  Transmission Date: 20141212
  Serious: Yes (Hospitalization)
  Sender: FDA-Public Use
  Company Number: BR-GLAXOSMITHKLINE-A1068800A

PATIENT
  Age: 46 Year
  Sex: Female
  Weight: 126 kg

DRUGS (1)
  1. SERETIDE [Suspect]
     Indication: BRONCHITIS
     Dosage: 1PUFF TWICE PER DAY
     Route: 065
     Dates: start: 2009, end: 201307

REACTIONS (4)
  - Investigation [Unknown]
  - Bronchitis [Recovered/Resolved]
  - Rash macular [Not Recovered/Not Resolved]
  - Treatment noncompliance [Unknown]
